FAERS Safety Report 4824497-8 (Version None)
Quarter: 2005Q4

REPORT INFORMATION
  Report Type: 
  Country: None (occurrence: None)
  Receive Date: 20051110
  Receipt Date: 20051107
  Transmission Date: 20060501
  Serious: Yes (Disabling)
  Sender: FDA-Public Use
  Company Number: AU-BOEHRINGER INGELHEIM PHARMACEUTICALS, INC.-2005-BP-19540AU

PATIENT
  Sex: Male

DRUGS (7)
  1. MICARDIS [Suspect]
     Route: 048
  2. NORVASC [Suspect]
     Indication: ESSENTIAL HYPERTENSION
     Route: 048
  3. FIBSOL [Suspect]
     Route: 048
  4. LASIX [Suspect]
     Route: 048
  5. WARFARIN [Suspect]
     Route: 048
  6. ZYLOPRIM [Suspect]
     Route: 048
  7. ARANESP [Suspect]

REACTIONS (6)
  - ASTHENIA [None]
  - HEAT RASH [None]
  - PARAESTHESIA [None]
  - PRURITUS [None]
  - SKIN BURNING SENSATION [None]
  - SKIN WARM [None]
